FAERS Safety Report 7343061-2 (Version None)
Quarter: 2011Q1

REPORT INFORMATION
  Report Type: 
  Country: None (occurrence: None)
  Receive Date: 20110310
  Receipt Date: 20110225
  Transmission Date: 20110831
  Serious: Yes (Hospitalization, Other)
  Sender: FDA-Public Use
  Company Number: PHHY2011JP14929

PATIENT
  Age: 6 Year
  Sex: Male

DRUGS (5)
  1. BUSCOPAN [Suspect]
  2. PENTAZOCINE LACTATE [Concomitant]
     Dosage: UNK
     Dates: start: 20110204, end: 20110204
  3. ATARAX [Concomitant]
  4. TEGRETOL [Suspect]
     Indication: EPILEPSY
     Dosage: 50 MG, QD
     Route: 048
     Dates: start: 20110114, end: 20110201
  5. PRIMPERAN TAB [Concomitant]
     Dosage: UNK
     Route: 048
     Dates: start: 20110129, end: 20110129

REACTIONS (7)
  - NEUROPATHY PERIPHERAL [None]
  - PUPILLARY REFLEX IMPAIRED [None]
  - INTESTINAL OBSTRUCTION [None]
  - GUILLAIN-BARRE SYNDROME [None]
  - NYSTAGMUS [None]
  - PUPILS UNEQUAL [None]
  - HYPOAESTHESIA [None]
